FAERS Safety Report 8202010-5 (Version None)
Quarter: 2012Q1

REPORT INFORMATION
  Report Type: 
  Country: None (occurrence: None)
  Receive Date: 20120312
  Receipt Date: 20120302
  Transmission Date: 20120608
  Serious: Yes (Other)
  Sender: FDA-Public Use
  Company Number: JP-MERCK-1203USA00807

PATIENT
  Age: 88 Year
  Sex: Female

DRUGS (4)
  1. PEPCID [Suspect]
     Route: 048
     Dates: start: 20120301
  2. LASIX [Concomitant]
     Indication: PLEURAL EFFUSION
     Route: 065
  3. PEPCID [Suspect]
     Route: 048
     Dates: start: 20120229, end: 20120229
  4. DIGOXIN [Concomitant]
     Indication: CARDIAC FAILURE
     Route: 065

REACTIONS (2)
  - DEPRESSED LEVEL OF CONSCIOUSNESS [None]
  - PCO2 INCREASED [None]
